FAERS Safety Report 10607416 (Version 1)
Quarter: 2014Q4

REPORT INFORMATION
  Report Type: Spontaneous
  Country: US (occurrence: None)
  Receive Date: 20141124
  Receipt Date: 20141124
  Transmission Date: 20150529
  Serious: Yes (Hospitalization)
  Sender: FDA-Public Use
  Company Number: None

PATIENT
  Age: 76 Year
  Sex: Male
  Weight: 78 kg

DRUGS (7)
  1. COREG [Concomitant]
     Active Substance: CARVEDILOL
  2. ASA [Concomitant]
     Active Substance: ASPIRIN
  3. LASIX [Suspect]
     Active Substance: FUROSEMIDE
  4. LISINOPRIL. [Concomitant]
     Active Substance: LISINOPRIL
  5. SOTALOL. [Suspect]
     Active Substance: SOTALOL
     Indication: ATRIAL FIBRILLATION
     Dosage: 120MG  Q12HR  PO?RECENT
     Route: 048
  6. LISPRO [Concomitant]
     Active Substance: INSULIN LISPRO
  7. PROTONIX [Concomitant]
     Active Substance: PANTOPRAZOLE SODIUM

REACTIONS (2)
  - Torsade de pointes [None]
  - Dizziness [None]

NARRATIVE: CASE EVENT DATE: 20140318
